FAERS Safety Report 8366365-3 (Version None)
Quarter: 2012Q2

REPORT INFORMATION
  Report Type: 
  Country: None (occurrence: None)
  Receive Date: 20120517
  Receipt Date: 20120511
  Transmission Date: 20120825
  Serious: Yes (Hospitalization, Other)
  Sender: FDA-Public Use
  Company Number: US-BAYER-2012-009318

PATIENT
  Age: 21 Year
  Sex: Female
  Weight: 58 kg

DRUGS (5)
  1. DROSPIRENONE AND ETHINYL ESTRADIOL [Suspect]
     Indication: ACNE
     Dosage: UNK
     Dates: start: 20090401, end: 20091201
  2. FLUOXETINE [Concomitant]
     Dosage: 20 MG, 20 MG/CAP
     Route: 048
     Dates: start: 20100430
  3. PROMETHAZINE [Concomitant]
     Dosage: 25 MG/TAB
     Route: 048
     Dates: start: 20100516
  4. YAZ [Suspect]
     Indication: ACNE
     Dosage: UNK
     Dates: start: 20070701, end: 20090401
  5. IBUPROFEN [Concomitant]
     Indication: PAIN

REACTIONS (9)
  - WEIGHT DECREASED [None]
  - EMOTIONAL DISTRESS [None]
  - CHOLELITHIASIS [None]
  - CONSTIPATION [None]
  - CHOLECYSTITIS CHRONIC [None]
  - ANXIETY [None]
  - PAIN [None]
  - ABDOMINAL PAIN [None]
  - GENERAL PHYSICAL HEALTH DETERIORATION [None]
